FAERS Safety Report 24809669 (Version 1)
Quarter: 2025Q1

REPORT INFORMATION
  Report Type: Other
  Country: US (occurrence: US)
  Receive Date: 20250106
  Receipt Date: 20250106
  Transmission Date: 20250409
  Serious: Yes (Hospitalization, Other)
  Sender: Kanchan Healthcare
  Company Number: US-Kanchan Healthcare INC-2168450

PATIENT
  Age: 71 Year
  Sex: Female

DRUGS (11)
  1. DEXAMETHASONE [Suspect]
     Active Substance: DEXAMETHASONE
     Indication: Central nervous system lymphoma
  2. CYCLOSPORINE [Suspect]
     Active Substance: CYCLOSPORINE
  3. PYRIDOSTIGMINE BROMIDE [Concomitant]
     Active Substance: PYRIDOSTIGMINE BROMIDE
  4. AMOXICILLIN\CLAVULANIC ACID [Concomitant]
     Active Substance: AMOXICILLIN\CLAVULANIC ACID
  5. Cobalamin [vitamin-B12] [Concomitant]
  6. Polysaccharide-iron-complex [Concomitant]
  7. HYDROCHLOROTHIAZIDE [Concomitant]
     Active Substance: HYDROCHLOROTHIAZIDE
  8. LATANOPROST [Concomitant]
     Active Substance: LATANOPROST
  9. CALCIUM CARBONATE WITH VITAMIN D (CHOLECALCIFEROL) [Concomitant]
     Active Substance: CALCIUM CARBONATE\CHOLECALCIFEROL
  10. MYCOPHENOLATE MOFETIL [Suspect]
     Active Substance: MYCOPHENOLATE MOFETIL
  11. PREDNISONE [Suspect]
     Active Substance: PREDNISONE

REACTIONS (2)
  - Brain abscess [Unknown]
  - Listeriosis [Unknown]
